FAERS Safety Report 10446602 (Version 1)
Quarter: 2014Q3

REPORT INFORMATION
  Report Type: Spontaneous
  Country: GB (occurrence: GB)
  Receive Date: 20140911
  Receipt Date: 20140911
  Transmission Date: 20150326
  Serious: Yes (Other)
  Sender: FDA-Public Use
  Company Number: GB-UCBSA-2014011088

PATIENT
  Age: 54 Year
  Sex: Male
  Weight: 96 kg

DRUGS (3)
  1. PARACETAMOL [Concomitant]
     Active Substance: ACETAMINOPHEN
     Dosage: UNK
     Dates: start: 20140822
  2. ETODOLAC. [Concomitant]
     Active Substance: ETODOLAC
     Dosage: UNK
     Dates: start: 20120101
  3. CIMZIA [Suspect]
     Active Substance: CERTOLIZUMAB PEGOL
     Indication: ANKYLOSING SPONDYLITIS
     Dosage: 400 MG, UNK
     Route: 051
     Dates: start: 20140822

REACTIONS (11)
  - Headache [Recovering/Resolving]
  - Photophobia [Not Recovered/Not Resolved]
  - Syringe issue [Unknown]
  - Decreased appetite [Not Recovered/Not Resolved]
  - Nausea [Recovering/Resolving]
  - Injection site irritation [Not Recovered/Not Resolved]
  - Arthralgia [Not Recovered/Not Resolved]
  - Pain [Not Recovered/Not Resolved]
  - Ankylosing spondylitis [Not Recovered/Not Resolved]
  - Fatigue [Not Recovered/Not Resolved]
  - Pyrexia [Recovering/Resolving]

NARRATIVE: CASE EVENT DATE: 2014
